FAERS Safety Report 8781810 (Version 1)
Quarter: 2012Q4

REPORT INFORMATION
  Report Type: 
  Country: IT (occurrence: IT)
  Receive Date: 20120913
  Receipt Date: 20120913
  Transmission Date: 20130627
  Serious: Yes (Other)
  Sender: FDA-Public Use
  Company Number: IT-PFIZER INC-2012224868

PATIENT

DRUGS (1)
  1. SUTENT [Suspect]
     Indication: RENAL CELL CARCINOMA
     Dosage: 50 mg, 1x/day
     Route: 048
     Dates: start: 20081210, end: 20090220

REACTIONS (5)
  - Ascites [Recovering/Resolving]
  - Tooth abscess [Recovering/Resolving]
  - Stomatitis [Recovering/Resolving]
  - Glossitis [Recovering/Resolving]
  - Hyperkeratosis [Recovering/Resolving]
